FAERS Safety Report 21162034 (Version 6)
Quarter: 2023Q4

REPORT INFORMATION
  Report Type: Report from Study
  Country: IT (occurrence: IT)
  Receive Date: 20220802
  Receipt Date: 20231213
  Transmission Date: 20240110
  Serious: Yes (Hospitalization, Other)
  Sender: FDA-Public Use
  Company Number: IT-UCBSA-2022042690

PATIENT
  Age: 71 Year
  Sex: Female
  Weight: 54 kg

DRUGS (2)
  1. LEVETIRACETAM [Suspect]
     Active Substance: LEVETIRACETAM
     Indication: Product used for unknown indication
     Dosage: 500 MILLIGRAM, 2X/DAY (BID)
     Route: 048
     Dates: start: 201812
  2. LEVETIRACETAM [Suspect]
     Active Substance: LEVETIRACETAM
     Dosage: 1000 MILLIGRAM, ONCE DAILY (QD), 500 MG 60 FILM-COATED TABLETS

REACTIONS (12)
  - Seizure [Recovered/Resolved]
  - Myalgia [Recovered/Resolved]
  - Ovarian cyst [Unknown]
  - Ovarian cystectomy [Unknown]
  - Pyrexia [Recovered/Resolved]
  - Cataract [Recovered/Resolved]
  - Cataract operation [Recovered/Resolved]
  - Rheumatoid arthritis [Recovered/Resolved]
  - Immobile [Unknown]
  - SARS-CoV-2 test positive [Recovered/Resolved]
  - Chalazion [Recovered/Resolved]
  - Chest pain [Recovered/Resolved]

NARRATIVE: CASE EVENT DATE: 20211201
